FAERS Safety Report 21526642 (Version 3)
Quarter: 2023Q1

REPORT INFORMATION
  Report Type: Report from Study
  Country: US (occurrence: US)
  Receive Date: 20221031
  Receipt Date: 20230203
  Transmission Date: 20230418
  Serious: No
  Sender: FDA-Public Use
  Company Number: US-ABBVIE-4150839

PATIENT
  Sex: Male

DRUGS (20)
  1. RINVOQ [Suspect]
     Active Substance: UPADACITINIB
     Indication: Dermatitis atopic
     Dosage: FORM STRENGTH : 15 MG
     Route: 048
     Dates: start: 20220831
  2. RINVOQ [Suspect]
     Active Substance: UPADACITINIB
     Indication: Dermatitis atopic
     Route: 048
     Dates: start: 20221101
  3. CLOBETASOL OIN 0.05% [Concomitant]
     Indication: Product used for unknown indication
  4. Hydrocortisone ace (Hydrocortisone acetate) SUP 25MG [Concomitant]
     Indication: Product used for unknown indication
  5. Moderna COVID-19 vaccine (Elasomeran) [Concomitant]
     Indication: COVID-19 immunisation
     Dosage: 1 IN 1 ONCE
     Route: 030
  6. Moderna COVID-19 vaccine (Elasomeran) [Concomitant]
     Indication: COVID-19 immunisation
     Dosage: 1 IN 1 ONCE (BOOSTER DOSE)
     Route: 030
  7. Fluocinolone acet (Fluocinolone acetonide)  OIL 0.01%SC; [Concomitant]
     Indication: Product used for unknown indication
  8. Hydrocortisone CRE 2.5%; [Concomitant]
     Indication: Product used for unknown indication
  9. Bryhali (Ulobetasol propionate) 0.01%; [Concomitant]
     Indication: Product used for unknown indication
  10. ALBUTEROL SULFATE [Concomitant]
     Active Substance: ALBUTEROL SULFATE
     Indication: Product used for unknown indication
  11. Prezista (Darunavir Ethanolate) TAB 600MG; [Concomitant]
     Indication: Product used for unknown indication
  12. Eucrisa (Crisaborole) OIN 2%; [Concomitant]
     Indication: Product used for unknown indication
  13. Shingrix (Varicella zoster vaccine rgE (CHO)) 50/0.5ML; [Concomitant]
     Indication: Product used for unknown indication
  14. Fluocinolone acet (Fluocinolone acetonide) OIL 0.01%; [Concomitant]
     Indication: Product used for unknown indication
  15. Kenalog 40 (Triamcinolone acetonide) NJ 40MG/ML; [Concomitant]
     Indication: Product used for unknown indication
  16. Ritonavir tl (Ritonavir) 100MG; [Concomitant]
     Indication: Product used for unknown indication
  17. Viibryd (Vilazodone hydrochloride) TAB 20MG [Concomitant]
     Indication: Product used for unknown indication
  18. Valacyclovir (Valaciclovir hydrochloride) TAB 1GM; [Concomitant]
     Indication: Product used for unknown indication
  19. Bupropion hcl xl (Bupropion hydrochloride) TAB 150MG XL [Concomitant]
     Indication: Product used for unknown indication
  20. Isentress (Raltegravir) TAB 400MG; [Concomitant]
     Indication: Product used for unknown indication

REACTIONS (3)
  - Fatigue [Not Recovered/Not Resolved]
  - Oral herpes [Not Recovered/Not Resolved]
  - Dermatitis atopic [Unknown]

NARRATIVE: CASE EVENT DATE: 20220101
